FAERS Safety Report 6309145-2 (Version None)
Quarter: 2009Q3

REPORT INFORMATION
  Report Type: 
  Country: None (occurrence: None)
  Receive Date: 20090814
  Receipt Date: 20090422
  Transmission Date: 20100115
  Serious: No
  Sender: FDA-Public Use
  Company Number: A0781339A

PATIENT
  Age: 55 Year
  Sex: Female

DRUGS (7)
  1. COREG CR [Suspect]
     Dosage: 10MG PER DAY
     Route: 048
     Dates: start: 20090414
  2. BENICAR [Concomitant]
  3. LYRICA [Concomitant]
  4. ASPIRIN [Concomitant]
  5. AMBIEN CR [Concomitant]
  6. XANAX [Concomitant]
  7. REQUIP [Concomitant]

REACTIONS (3)
  - HEADACHE [None]
  - HEART RATE DECREASED [None]
  - HYPOTENSION [None]
